FAERS Safety Report 5725885-8 (Version None)
Quarter: 2008Q2

REPORT INFORMATION
  Report Type: 
  Country: None (occurrence: None)
  Receive Date: 20080429
  Receipt Date: 20080414
  Transmission Date: 20081010
  Serious: No
  Sender: FDA-Public Use
  Company Number: 2008S1003292

PATIENT
  Age: 20 Year
  Sex: Male

DRUGS (4)
  1. AMNESTEEM [Suspect]
     Indication: ACNE
     Dosage: 20 MG DAILY ORAL
     Route: 048
     Dates: start: 20071031, end: 20071231
  2. AMNESTEEM [Suspect]
     Indication: ACNE
     Dosage: 40 MG DAILY ORAL; 40 MG TWICE A DAY ORAL
     Route: 048
     Dates: start: 20071031, end: 20071231
  3. AMNESTEEM [Suspect]
     Indication: ACNE
     Dosage: 40 MG DAILY ORAL; 40 MG TWICE A DAY ORAL
     Route: 048
     Dates: start: 20071231, end: 20080223
  4. MULTI-VITAMIN [Concomitant]

REACTIONS (6)
  - CRYING [None]
  - DEPRESSION [None]
  - DRUG INEFFECTIVE [None]
  - FEELING ABNORMAL [None]
  - LOSS OF EMPLOYMENT [None]
  - SUICIDAL IDEATION [None]
